FAERS Safety Report 7602999-9 (Version None)
Quarter: 2011Q3

REPORT INFORMATION
  Report Type: 
  Country: None (occurrence: None)
  Receive Date: 20110712
  Receipt Date: 20110707
  Transmission Date: 20111222
  Serious: Yes (Other)
  Sender: FDA-Public Use
  Company Number: JP-GENZYME-THYM-1002590

PATIENT
  Age: 1 Year
  Sex: Male
  Weight: 11.5 kg

DRUGS (1)
  1. THYMOGLOBULIN [Suspect]
     Indication: BONE MARROW CONDITIONING REGIMEN
     Dosage: 2.5 MG/KG, QD
     Route: 042
     Dates: start: 20110618, end: 20110619

REACTIONS (3)
  - TRANSAMINASES INCREASED [None]
  - ACUTE GRAFT VERSUS HOST DISEASE IN LIVER [None]
  - BLOOD BILIRUBIN INCREASED [None]
